FAERS Safety Report 6429778-2 (Version None)
Quarter: 2009Q4

REPORT INFORMATION
  Report Type: 
  Country: None (occurrence: None)
  Receive Date: 20091104
  Receipt Date: 20091104
  Transmission Date: 20100525
  Serious: No
  Sender: FDA-Public Use
  Company Number: None

PATIENT
  Age: 67 Year
  Sex: Female
  Weight: 72.5755 kg

DRUGS (1)
  1. EVOXAC [Suspect]
     Indication: SJOGREN'S SYNDROME
     Dosage: 30MG 3 DAILY PO
     Route: 048
     Dates: start: 20091014, end: 20091022

REACTIONS (2)
  - MALAISE [None]
  - UNEVALUABLE EVENT [None]
